FAERS Safety Report 5731497-2 (Version None)
Quarter: 2008Q2

REPORT INFORMATION
  Report Type: 
  Country: None (occurrence: None)
  Receive Date: 20080508
  Receipt Date: 20080506
  Transmission Date: 20081010
  Serious: Yes (Hospitalization)
  Sender: FDA-Public Use
  Company Number: PHHO2008GB04846

PATIENT
  Age: 52 Year
  Sex: Female
  Weight: 67 kg

DRUGS (1)
  1. TEGASEROD [Suspect]
     Indication: IRRITABLE BOWEL SYNDROME
     Dosage: 2 MG, BID
     Dates: start: 19981116

REACTIONS (3)
  - COLPOSUSPENSION [None]
  - CONCOMITANT DISEASE PROGRESSION [None]
  - STRESS URINARY INCONTINENCE [None]
